FAERS Safety Report 6240208-6 (Version None)
Quarter: 2009Q2

REPORT INFORMATION
  Report Type: 
  Country: None (occurrence: None)
  Receive Date: 20090623
  Receipt Date: 20080313
  Transmission Date: 20091009
  Serious: No
  Sender: FDA-Public Use
  Company Number: US-ASTRAZENECA-2008UW05093

PATIENT
  Age: 60 Year
  Sex: Female

DRUGS (2)
  1. PULMICORT FLEXHALER [Suspect]
     Indication: BRONCHIECTASIS
     Dosage: 2 PUFFS
     Route: 055
     Dates: start: 20080226
  2. PULMICORT FLEXHALER [Suspect]
     Dosage: 1 PUFF
     Route: 055
     Dates: start: 20080226

REACTIONS (3)
  - ABNORMAL DREAMS [None]
  - GLOSSODYNIA [None]
  - SLEEP DISORDER [None]
